FAERS Safety Report 5531891-9 (Version None)
Quarter: 2007Q4

REPORT INFORMATION
  Report Type: 
  Country: None (occurrence: None)
  Receive Date: 20071203
  Receipt Date: 20071122
  Transmission Date: 20080405
  Serious: Yes (Other)
  Sender: FDA-Public Use
  Company Number: ES-JNJFOC-20071108168

PATIENT
  Age: 86 Year
  Sex: Female

DRUGS (2)
  1. TAVANIC [Suspect]
     Indication: PNEUMONIA
     Route: 048
  2. TAVANIC [Suspect]
     Route: 042

REACTIONS (1)
  - INFUSION SITE PHLEBITIS [None]
